FAERS Safety Report 6312442-8 (Version None)
Quarter: 2009Q3

REPORT INFORMATION
  Report Type: 
  Country: None (occurrence: None)
  Receive Date: 20090817
  Receipt Date: 20090602
  Transmission Date: 20100115
  Serious: Yes (Other)
  Sender: FDA-Public Use
  Company Number: ES-GILEAD-2009-0023633

PATIENT
  Age: 45 Year
  Sex: Male

DRUGS (6)
  1. VIREAD [Suspect]
     Indication: HIV INFECTION
  2. EMTRIVA [Suspect]
     Indication: HIV INFECTION
  3. ATAZANAVIR SULFATE [Suspect]
     Indication: HIV INFECTION
  4. RITOVIR [Suspect]
     Indication: HIV INFECTION
  5. OMEPRAZOLE [Suspect]
     Indication: DYSPEPSIA
  6. FAMOTIDINE [Concomitant]
     Indication: DYSPEPSIA

REACTIONS (2)
  - DRUG INTERACTION [None]
  - VIROLOGIC FAILURE [None]
